FAERS Safety Report 5218679-3 (Version None)
Quarter: 2007Q1

REPORT INFORMATION
  Report Type: 
  Country: None (occurrence: None)
  Receive Date: 20070122
  Receipt Date: 20070108
  Transmission Date: 20070707
  Serious: Yes (Hospitalization, Other)
  Sender: FDA-Public Use
  Company Number: HQWYE832609JAN07

PATIENT
  Age: 71 Year
  Sex: Male

DRUGS (10)
  1. PROTONIX [Suspect]
     Indication: HIATUS HERNIA
     Dosage: 40  MG 1X PER 1 DAY, ORAL
     Route: 048
     Dates: start: 20030101, end: 20030101
  2. PROTONIX [Suspect]
     Indication: PAIN
     Dosage: 40  MG 1X PER 1 DAY, ORAL
     Route: 048
     Dates: start: 20030101, end: 20030101
  3. PROTONIX [Suspect]
     Indication: HIATUS HERNIA
     Dosage: 40  MG 1X PER 1 DAY, ORAL
     Route: 048
     Dates: start: 20061201
  4. PROTONIX [Suspect]
     Indication: PAIN
     Dosage: 40  MG 1X PER 1 DAY, ORAL
     Route: 048
     Dates: start: 20061201
  5. ASPIRIN [Concomitant]
  6. ATENOLOL [Concomitant]
  7. ACTOS [Concomitant]
  8. LEVOXYL [Concomitant]
  9. GLUCOTROL [Concomitant]
  10. PLAVIX [Concomitant]

REACTIONS (2)
  - CHEST PAIN [None]
  - COLON CANCER [None]
